FAERS Safety Report 8924002 (Version 1)
Quarter: 2012Q4

REPORT INFORMATION
  Report Type: 
  Country: ES (occurrence: ES)
  Receive Date: 20121126
  Receipt Date: 20121126
  Transmission Date: 20130627
  Serious: Yes (Other)
  Sender: FDA-Public Use
  Company Number: ES-ASTRAZENECA-2012SE87112

PATIENT
  Age: 75 Year
  Sex: Female

DRUGS (8)
  1. PROVISACOR [Suspect]
     Route: 048
     Dates: start: 20120515
  2. CILOSTAZOL [Concomitant]
     Dosage: BID FREQUENCY, TOTALY DAILY DOSE 200 MG
     Route: 048
  3. METFORMIN [Concomitant]
     Dosage: BID FREQUENCY, TOTALY DAILY DOSE 1700 MG
     Route: 048
  4. AMLODIPINE [Concomitant]
     Route: 048
  5. OMEPRAZOL [Concomitant]
     Route: 048
  6. INSULATARD NPH [Concomitant]
     Route: 058
  7. LISINOPRIL+HYDROCHLOROTHIAZIDE [Concomitant]
     Route: 048
  8. VATOUD [Concomitant]
     Route: 048
     Dates: start: 20120515

REACTIONS (4)
  - Lip oedema [Recovered/Resolved]
  - Eyelid oedema [Recovered/Resolved]
  - Rash erythematous [Recovered/Resolved]
  - Pruritus [Recovered/Resolved]
